FAERS Safety Report 21041221 (Version 1)
Quarter: 2022Q3

REPORT INFORMATION
  Report Type: Spontaneous
  Country: BE (occurrence: None)
  Receive Date: 20220705
  Receipt Date: 20220705
  Transmission Date: 20221027
  Serious: Yes (Other)
  Sender: FDA-Public Use
  Company Number: 2022A238994

PATIENT
  Sex: Male

DRUGS (5)
  1. ROSUVASTATIN [Suspect]
     Active Substance: ROSUVASTATIN
     Indication: Coronary artery disease
     Route: 065
  2. PRADAXA [Suspect]
     Active Substance: DABIGATRAN ETEXILATE MESYLATE
     Indication: Atrial fibrillation
     Route: 065
  3. FLECAINIDE ACETATE [Suspect]
     Active Substance: FLECAINIDE ACETATE
     Indication: Product used for unknown indication
     Route: 065
  4. ASPIRIN [Concomitant]
     Active Substance: ASPIRIN
     Indication: Product used for unknown indication
  5. PANTOMED [Concomitant]
     Indication: Product used for unknown indication

REACTIONS (3)
  - Retinal vascular occlusion [Unknown]
  - Retinal artery occlusion [Unknown]
  - Drug interaction [Unknown]
